FAERS Safety Report 19689475 (Version 1)
Quarter: 2021Q3

REPORT INFORMATION
  Report Type: Spontaneous
  Country: US (occurrence: US)
  Receive Date: 20210812
  Receipt Date: 20210812
  Transmission Date: 20211014
  Serious: No
  Sender: FDA-Public Use
  Company Number: US-009507513-2108USA001290

PATIENT
  Age: 13 Year
  Sex: Male

DRUGS (4)
  1. BEVACIZUMAB. [Concomitant]
     Active Substance: BEVACIZUMAB
     Indication: GLIOMA
     Dosage: UNK
  2. ONC 201 [Concomitant]
     Indication: GLIOMA
     Dosage: UNK
  3. TEMODAR [Suspect]
     Active Substance: TEMOZOLOMIDE
     Indication: GLIOMA
     Dosage: UNK
     Route: 048
  4. IRINOTECAN [Concomitant]
     Active Substance: IRINOTECAN
     Indication: GLIOMA
     Dosage: UNK

REACTIONS (1)
  - Product use issue [Unknown]
